FAERS Safety Report 4924533-4 (Version None)
Quarter: 2006Q1

REPORT INFORMATION
  Report Type: 
  Country: None (occurrence: None)
  Receive Date: 20060222
  Receipt Date: 20060206
  Transmission Date: 20060701
  Serious: Yes (Other)
  Sender: FDA-Public Use
  Company Number: 28560

PATIENT
  Age: 70 Year
  Sex: Female

DRUGS (12)
  1. FLECAINIDE ACETATE [Suspect]
     Indication: ATRIAL FIBRILLATION
     Dosage: 200 MG (100 MG, 2 IN 1 DAY (S))  ORAL
     Route: 048
     Dates: start: 20010101, end: 20060101
  2. FLECAINIDE ACETATE [Suspect]
     Indication: ATRIAL FLUTTER
     Dosage: 200 MG (100 MG, 2 IN 1 DAY (S))  ORAL
     Route: 048
     Dates: start: 20010101, end: 20060101
  3. FLECAINIDE ACETATE [Suspect]
     Indication: ATRIAL FIBRILLATION
     Dosage: 200 MG (100 MG, 2 IN 1 DAY (S))  ORAL
     Route: 048
     Dates: start: 20030101, end: 20060101
  4. FLECAINIDE ACETATE [Suspect]
     Indication: ATRIAL FLUTTER
     Dosage: 200 MG (100 MG, 2 IN 1 DAY (S))  ORAL
     Route: 048
     Dates: start: 20030101, end: 20060101
  5. FLECAINIDE ACETATE [Suspect]
     Indication: ATRIAL FIBRILLATION
     Dosage: 200 MG (100 MG, 2 IN 1 DAY (S))  ORAL
     Route: 048
     Dates: start: 20060101
  6. FLECAINIDE ACETATE [Suspect]
     Indication: ATRIAL FLUTTER
     Dosage: 200 MG (100 MG, 2 IN 1 DAY (S))  ORAL
     Route: 048
     Dates: start: 20060101
  7. SOTALOL HCL [Suspect]
     Indication: ATRIAL FIBRILLATION
     Dosage: 80 MG (40 MG, 2 IN 1 DAY (S))
     Route: 048
     Dates: start: 20010101, end: 20060101
  8. SOTALOL HCL [Suspect]
     Indication: ATRIAL FLUTTER
     Dosage: 80 MG (40 MG, 2 IN 1 DAY (S))
     Route: 048
     Dates: start: 20010101, end: 20060101
  9. SOTALOL HCL [Suspect]
     Indication: ATRIAL FIBRILLATION
     Dosage: 80 MG (40 MG, 2 IN 1 DAY (S))
     Route: 048
     Dates: start: 20060101
  10. SOTALOL HCL [Suspect]
     Indication: ATRIAL FLUTTER
     Dosage: 80 MG (40 MG, 2 IN 1 DAY (S))
     Route: 048
     Dates: start: 20060101
  11. ALDACTONE [Suspect]
     Indication: HYPERTENSION
     Dosage: 150 MG (75 MG, 2 IN 1 DAY (S)) ORAL
     Route: 048
     Dates: start: 20051201
  12. LEVOTHYROXINE SODIUM [Concomitant]

REACTIONS (5)
  - BRADYCARDIA [None]
  - MALAISE [None]
  - NODAL RHYTHM [None]
  - SINUS ARREST [None]
  - SYNCOPE [None]
